FAERS Safety Report 6360338-8 (Version None)
Quarter: 2009Q3

REPORT INFORMATION
  Report Type: 
  Country: None (occurrence: None)
  Receive Date: 20090917
  Receipt Date: 20090908
  Transmission Date: 20100115
  Serious: Yes (Other)
  Sender: FDA-Public Use
  Company Number: PHHY2009GB28064

PATIENT
  Sex: Male
  Weight: 100 kg

DRUGS (9)
  1. NEORAL [Suspect]
     Indication: NEPHROTIC SYNDROME
     Dosage: 250 MG/DAY
     Route: 048
     Dates: start: 20080201, end: 20090701
  2. VALPROIC ACID [Concomitant]
     Indication: BIPOLAR DISORDER
     Dosage: 1.5  G/DAY
     Route: 048
  3. DIAZEPAM [Concomitant]
     Indication: AGITATION
     Dosage: 20 MG/DAY
     Route: 048
  4. DULOXETINE [Concomitant]
     Indication: DEPRESSION
     Dosage: 20 MG/DAY
     Route: 048
  5. CANDESARTAN CILEXETIL [Concomitant]
     Indication: HYPERTENSION
     Dosage: 4 MG/DAY
     Route: 048
  6. QUININE [Concomitant]
     Indication: MUSCLE SPASMS
     Dosage: 300 MG/DAY
     Route: 048
  7. DILTIAZEM [Concomitant]
     Indication: HYPERTENSION
     Dosage: 200 MG/DAY
     Route: 048
  8. NITRAZEPAM [Concomitant]
     Indication: SLEEP DISORDER
     Dosage: 10 MG/DAY
     Route: 048
  9. ATORVASTATIN [Concomitant]
     Indication: BLOOD CHOLESTEROL ABNORMAL
     Dosage: 40 MG/DAY
     Route: 048

REACTIONS (5)
  - AGGRESSION [None]
  - AMNESIA [None]
  - ANGER [None]
  - PSYCHOTIC DISORDER [None]
  - TOXIC ENCEPHALOPATHY [None]
